FAERS Safety Report 9233446 (Version 1)
Quarter: 2013Q2

REPORT INFORMATION
  Report Type: Spontaneous
  Country: US (occurrence: US)
  Receive Date: 20130416
  Receipt Date: 20130416
  Transmission Date: 20140414
  Serious: No
  Sender: FDA-Public Use
  Company Number: US-BANPHARM-20120025

PATIENT
  Age: 77 Year
  Sex: Female
  Weight: 54.54 kg

DRUGS (3)
  1. ALEVE LIQUID GELS 220 MG [Suspect]
     Indication: PAIN
     Dosage: 1 DF, TID,
     Route: 048
     Dates: start: 2012, end: 20120720
  2. RAMIPRIL [Concomitant]
  3. LOVASTATIN [Concomitant]

REACTIONS (2)
  - Heart rate increased [Recovered/Resolved]
  - Incorrect drug administration duration [Unknown]
